FAERS Safety Report 17858465 (Version 2)
Quarter: 2020Q2

REPORT INFORMATION
  Report Type: Report from Study
  Country: None (occurrence: US)
  Receive Date: 20200604
  Receipt Date: 20200605
  Transmission Date: 20200714
  Serious: No
  Sender: FDA-Public Use
  Company Number: US-US WORLDMEDS, LLC-USW201909-001688

PATIENT
  Age: 74 Year
  Sex: Male
  Weight: 77.11 kg

DRUGS (19)
  1. ROPINIROLE. [Concomitant]
     Active Substance: ROPINIROLE
  2. VIT D [Concomitant]
     Active Substance: VITAMIN D NOS
  3. AZILECT [Concomitant]
     Active Substance: RASAGILINE MESYLATE
  4. APOKYN [Suspect]
     Active Substance: APOMORPHINE HYDROCHLORIDE
     Indication: PARKINSON^S DISEASE
     Route: 058
     Dates: start: 20190904
  5. GABAPENTIN. [Concomitant]
     Active Substance: GABAPENTIN
  6. LEVOTHYROXINE. [Concomitant]
     Active Substance: LEVOTHYROXINE
  7. CARBO [Concomitant]
  8. AMANTADINE. [Concomitant]
     Active Substance: AMANTADINE HYDROCHLORIDE
  9. CLONAZEPAM. [Concomitant]
     Active Substance: CLONAZEPAM
  10. PRAVASTATIN. [Concomitant]
     Active Substance: PRAVASTATIN
  11. MULTIVIT [Concomitant]
     Active Substance: VITAMINS
  12. MELATONIN [Concomitant]
     Active Substance: MELATONIN
  13. FLO MAX [Concomitant]
  14. CARB/LEVODOPA [Concomitant]
  15. ASA [Concomitant]
     Active Substance: ASPIRIN
  16. MIRALAX [Concomitant]
     Active Substance: POLYETHYLENE GLYCOL 3350
  17. PROVIGIL [Concomitant]
     Active Substance: MODAFINIL
  18. NORTHERA [Concomitant]
     Active Substance: DROXIDOPA
  19. COLACE [Concomitant]
     Active Substance: DOCUSATE SODIUM
     Dosage: 2 @ HS FISH OIL TWICE A DAY

REACTIONS (4)
  - Blood pressure increased [Recovered/Resolved]
  - Muscle rigidity [Recovered/Resolved]
  - Somnolence [Recovered/Resolved]
  - Headache [Recovered/Resolved]

NARRATIVE: CASE EVENT DATE: 20190904
